FAERS Safety Report 21310565 (Version 7)
Quarter: 2023Q4

REPORT INFORMATION
  Report Type: Spontaneous
  Country: US (occurrence: US)
  Receive Date: 20220909
  Receipt Date: 20231127
  Transmission Date: 20240110
  Serious: Yes (Other)
  Sender: FDA-Public Use
  Company Number: US-BRISTOL-MYERS SQUIBB COMPANY-2022-097460

PATIENT
  Age: 74 Year
  Sex: Male
  Weight: 63.5 kg

DRUGS (11)
  1. OPDUALAG [Suspect]
     Active Substance: NIVOLUMAB\RELATLIMAB-RMBW
     Indication: Malignant melanoma
     Dosage: DOSE : 1;     FREQ : EVERY 28 DAYS
     Route: 042
     Dates: start: 20220808
  2. NAPROXEN [Concomitant]
     Active Substance: NAPROXEN
     Indication: Pain
     Dosage: ^SOMETIMES TAKE 1/2^
  3. B COMPLEX 50 [Concomitant]
     Indication: Product used for unknown indication
  4. BETA GLUCAN [Concomitant]
     Active Substance: BETA GLUCAN
     Indication: Adrenal disorder
     Dosage: 500
  5. VITAMIN D3 [Concomitant]
     Active Substance: CHOLECALCIFEROL
     Indication: Product used for unknown indication
     Dosage: 5000IU/125MCG (5)
  6. CURCUMIN S [Concomitant]
     Indication: Product used for unknown indication
     Dosage: ALTERNATE EVERY OTHER DAY
  7. AMLODIPINE [Concomitant]
     Active Substance: AMLODIPINE BESYLATE
     Indication: Hypertension
     Dosage: 2.5
  8. AMLODIPINE [Concomitant]
     Active Substance: AMLODIPINE BESYLATE
  9. BENAZEPRIL [Concomitant]
     Active Substance: BENAZEPRIL HYDROCHLORIDE
     Indication: Hypertension
  10. VITAMIN D3 [Concomitant]
     Active Substance: CHOLECALCIFEROL
     Indication: Product used for unknown indication
  11. VITAMINS [Concomitant]
     Active Substance: VITAMINS
     Indication: Product used for unknown indication

REACTIONS (17)
  - Pain [Unknown]
  - Chest pain [Unknown]
  - Palpitations [Unknown]
  - Blood pressure fluctuation [Unknown]
  - Rash [Unknown]
  - Fatigue [Unknown]
  - Chest discomfort [Unknown]
  - Hypertension [Unknown]
  - Skin lesion [Unknown]
  - Paraesthesia [Unknown]
  - Gait disturbance [Unknown]
  - Speech disorder [Unknown]
  - Basal cell carcinoma [Recovered/Resolved]
  - Rash macular [Unknown]
  - Lipoma [Not Recovered/Not Resolved]
  - Condition aggravated [Not Recovered/Not Resolved]
  - Hypoacusis [Unknown]
